FAERS Safety Report 7423265-0 (Version None)
Quarter: 2011Q2

REPORT INFORMATION
  Report Type: 
  Country: None (occurrence: None)
  Receive Date: 20110419
  Receipt Date: 20091215
  Transmission Date: 20111010
  Serious: No
  Sender: FDA-Public Use
  Company Number: US-BAYER-200943744NA

PATIENT
  Age: 20 Year
  Sex: Female

DRUGS (1)
  1. YAZ [Suspect]
     Route: 048
     Dates: start: 20081201

REACTIONS (5)
  - BREAST TENDERNESS [None]
  - ABNORMAL WITHDRAWAL BLEEDING [None]
  - HEADACHE [None]
  - DYSMENORRHOEA [None]
  - WITHDRAWAL BLEED [None]
